FAERS Safety Report 5463936-9 (Version None)
Quarter: 2007Q3

REPORT INFORMATION
  Report Type: 
  Country: None (occurrence: None)
  Receive Date: 20070921
  Receipt Date: 20070723
  Transmission Date: 20080115
  Serious: No
  Sender: FDA-Public Use
  Company Number: A0665818A

PATIENT
  Sex: Female

DRUGS (4)
  1. AVANDARYL [Suspect]
     Dosage: 4MG TWICE PER DAY
     Route: 048
     Dates: start: 20040101, end: 20070601
  2. METFORMIN HCL [Suspect]
     Route: 048
  3. LEVEMIR [Concomitant]
  4. HYZAAR [Concomitant]

REACTIONS (2)
  - BLOOD GLUCOSE INCREASED [None]
  - MUSCLE SPASMS [None]
